APPROVED DRUG PRODUCT: KANAMYCIN SULFATE
Active Ingredient: KANAMYCIN SULFATE
Strength: EQ 1GM BASE/3ML
Dosage Form/Route: INJECTABLE;INJECTION
Application: A062520 | Product #003
Applicant: WATSON LABORATORIES INC
Approved: May 9, 1985 | RLD: No | RS: No | Type: DISCN